FAERS Safety Report 5582714-3 (Version None)
Quarter: 2008Q1

REPORT INFORMATION
  Report Type: 
  Country: None (occurrence: None)
  Receive Date: 20080107
  Receipt Date: 20071227
  Transmission Date: 20080703
  Serious: Yes (Hospitalization)
  Sender: FDA-Public Use
  Company Number: FR-BRISTOL-MYERS SQUIBB COMPANY-14016240

PATIENT
  Age: 31 Year
  Sex: Female

DRUGS (18)
  1. UROMITEXAN [Suspect]
     Indication: CHEMOTHERAPY
     Route: 042
     Dates: start: 20071115, end: 20071115
  2. ENDOXAN [Suspect]
     Dates: start: 20071115, end: 20071115
  3. ZOPHREN [Suspect]
     Indication: CHEMOTHERAPY
     Route: 042
     Dates: start: 20071115, end: 20071115
  4. BACTRIM [Concomitant]
     Route: 048
     Dates: start: 20071113
  5. SOLUPRED [Concomitant]
     Route: 048
  6. TRIATEC [Concomitant]
  7. HEPARIN [Concomitant]
  8. CALCIDIA [Concomitant]
  9. KAYEXALATE [Concomitant]
  10. LASILIX [Concomitant]
  11. RENAGEL [Concomitant]
  12. ATARAX [Concomitant]
  13. DI-ANTALVIC [Concomitant]
  14. FORLAX [Concomitant]
  15. EDUCTYL [Concomitant]
  16. INIPOMP [Concomitant]
  17. LYRICA [Concomitant]
  18. PREGABALIN [Concomitant]

REACTIONS (3)
  - ERYTHEMA [None]
  - FORMICATION [None]
  - SWELLING FACE [None]
